FAERS Safety Report 6722793-0 (Version None)
Quarter: 2010Q2

REPORT INFORMATION
  Report Type: 
  Country: None (occurrence: None)
  Receive Date: 20100512
  Receipt Date: 20100512
  Transmission Date: 20101027
  Serious: Yes (Hospitalization)
  Sender: FDA-Public Use
  Company Number: None

PATIENT
  Age: 76 Year
  Sex: Male
  Weight: 63.7 kg

DRUGS (2)
  1. LISINOPRIL AND HYDROCHLOROTHIAZIDE [Suspect]
     Indication: HYPERTENSION
     Dosage: 25/20 MG EVERY DAY PO
     Route: 048
     Dates: end: 20100331
  2. BUPROPION HCL [Suspect]
     Indication: SMOKING CESSATION THERAPY
     Dosage: 150 MG BID PO
     Route: 048
     Dates: start: 20100310, end: 20100331

REACTIONS (8)
  - DIARRHOEA [None]
  - DYSARTHRIA [None]
  - FALL [None]
  - GAIT DISTURBANCE [None]
  - HYPERTHYROIDISM [None]
  - HYPOPHAGIA [None]
  - HYPOTHYROIDISM [None]
  - INAPPROPRIATE ANTIDIURETIC HORMONE SECRETION [None]
